FAERS Safety Report 5837912-8 (Version None)
Quarter: 2008Q3

REPORT INFORMATION
  Report Type: 
  Country: None (occurrence: None)
  Receive Date: 20080808
  Receipt Date: 20080804
  Transmission Date: 20090109
  Serious: Yes (Other)
  Sender: FDA-Public Use
  Company Number: NL-JNJFOC-20080800983

PATIENT
  Sex: Male

DRUGS (5)
  1. HALDOL [Suspect]
     Route: 065
  2. HALDOL [Suspect]
     Route: 065
  3. HALDOL [Suspect]
     Route: 065
  4. HALDOL [Suspect]
     Route: 065
  5. HALDOL [Suspect]
     Indication: PSYCHOTIC DISORDER
     Route: 065

REACTIONS (3)
  - RESTLESSNESS [None]
  - STRESS [None]
  - SUICIDAL IDEATION [None]
